FAERS Safety Report 16296339 (Version 7)
Quarter: 2020Q3

REPORT INFORMATION
  Report Type: Report from Study
  Country: US (occurrence: US)
  Receive Date: 20190510
  Receipt Date: 20200713
  Transmission Date: 20201102
  Serious: Yes (Other)
  Sender: FDA-Public Use
  Company Number: US-BAYER-2019-064355

PATIENT
  Age: 58 Year
  Sex: Female

DRUGS (17)
  1. VENLAFAXINE HYDROCHLORIDE. [Concomitant]
     Active Substance: VENLAFAXINE HYDROCHLORIDE
     Dosage: UNK
  2. MECLIZINE [Concomitant]
     Active Substance: MECLIZINE HYDROCHLORIDE
     Dosage: UNK
  3. STIVARGA [Suspect]
     Active Substance: REGORAFENIB
     Indication: BLADDER NEOPLASM
     Dosage: 120 MG, QD ON DAYS 1?21,FOLLOWED BY 7 DAYS OF REST
     Route: 048
     Dates: start: 2020
  4. FLORANEX [Concomitant]
     Active Substance: LACTOBACILLUS ACIDOPHILUS\LACTOBACILLUS DELBRUECKII SUBSP. BULGARICUS
  5. STIVARGA [Suspect]
     Active Substance: REGORAFENIB
     Indication: BLADDER NEOPLASM
     Dosage: 160 MG, QD
     Route: 048
     Dates: start: 202004, end: 2020
  6. CETAPHIL [CETYL ALCOHOL;PROPYLENE GLYCOL;SODIUM LAURYL SULFATE;STE [Concomitant]
  7. AZO GANTANOL [Concomitant]
     Active Substance: PHENAZOPYRIDINE HYDROCHLORIDE\SULFAMETHOXAZOLE
     Dosage: UNK
  8. NEXAVAR [Suspect]
     Active Substance: SORAFENIB
     Indication: IRON DEFICIENCY ANAEMIA
     Dosage: DAILY DOSE 200 MG
     Route: 048
     Dates: start: 20190320, end: 2019
  9. CYANOCOBALAMIN. [Concomitant]
     Active Substance: CYANOCOBALAMIN
  10. NEXAVAR [Suspect]
     Active Substance: SORAFENIB
     Indication: CONNECTIVE TISSUE NEOPLASM
     Dosage: 400 MG, BID
     Route: 048
     Dates: start: 2019
  11. ATORVASTATIN CALCIUM. [Concomitant]
     Active Substance: ATORVASTATIN CALCIUM
  12. MECLOZINE HYDROCHLORIDE [Concomitant]
     Active Substance: MECLOZINE DIHYDROCHLORIDE
  13. NEXAVAR [Suspect]
     Active Substance: SORAFENIB
     Indication: SOFT TISSUE NEOPLASM
     Dosage: 400 MG, BID
     Route: 048
     Dates: end: 20190501
  14. NEXAVAR [Suspect]
     Active Substance: SORAFENIB
     Indication: IRON DEFICIENCY ANAEMIA
     Dosage: 400 MG, BID
     Route: 048
     Dates: end: 20190501
  15. STIVARGA [Suspect]
     Active Substance: REGORAFENIB
     Indication: BLADDER NEOPLASM
     Dosage: 160 MG, QD ON DAYS 1?21,FOLLOWED BY 7 DAYS OF REST, REPEATED EV
     Route: 048
     Dates: start: 2020
  16. RAMIPRIL. [Concomitant]
     Active Substance: RAMIPRIL
  17. PHENAZOPYRIDINE HYDROCHLORIDE. [Concomitant]
     Active Substance: PHENAZOPYRIDINE HYDROCHLORIDE
     Dosage: UNK

REACTIONS (34)
  - Dysstasia [Not Recovered/Not Resolved]
  - Hypoaesthesia [Not Recovered/Not Resolved]
  - Palmar-plantar erythrodysaesthesia syndrome [None]
  - Pain in extremity [None]
  - Blister [Unknown]
  - Erythema [Not Recovered/Not Resolved]
  - Asthenia [None]
  - Dry skin [None]
  - Pain [None]
  - Pyrexia [None]
  - Palmar-plantar erythrodysaesthesia syndrome [Not Recovered/Not Resolved]
  - Dysuria [Recovered/Resolved]
  - Urinary tract infection [None]
  - Abdominal pain [None]
  - Gait inability [None]
  - Gastritis [Not Recovered/Not Resolved]
  - Gastritis [None]
  - Off label use [None]
  - Swelling face [Not Recovered/Not Resolved]
  - Palmar-plantar erythrodysaesthesia syndrome [Recovering/Resolving]
  - Chest pain [None]
  - Disease progression [None]
  - Oral mucosal blistering [Unknown]
  - Off label use [None]
  - Product use in unapproved indication [None]
  - Pain of skin [None]
  - Headache [None]
  - Product use in unapproved indication [None]
  - Skin burning sensation [None]
  - Fatigue [Not Recovered/Not Resolved]
  - Headache [Not Recovered/Not Resolved]
  - Blister [None]
  - Flank pain [None]
  - Fatigue [None]

NARRATIVE: CASE EVENT DATE: 2019
